FAERS Safety Report 12455239 (Version 1)
Quarter: 2016Q2

REPORT INFORMATION
  Report Type: Spontaneous
  Country: US (occurrence: None)
  Receive Date: 20160609
  Receipt Date: 20160609
  Transmission Date: 20160815
  Serious: No
  Sender: FDA-Public Use
  Company Number: None

PATIENT
  Age: 61 Year
  Sex: Female

DRUGS (10)
  1. TRULICITY [Concomitant]
     Active Substance: DULAGLUTIDE
  2. METFORMIN [Concomitant]
     Active Substance: METFORMIN HYDROCHLORIDE
  3. CITALOPRAM HYDROBROMIDE. [Concomitant]
     Active Substance: CITALOPRAM HYDROBROMIDE
  4. DAKLINZA [Suspect]
     Active Substance: DACLATASVIR
     Indication: HEPATITIS C
     Route: 048
     Dates: start: 20160520
  5. GLIPIZIDE. [Concomitant]
     Active Substance: GLIPIZIDE
  6. SIMVASTATIN. [Concomitant]
     Active Substance: SIMVASTATIN
  7. LANTUS [Concomitant]
     Active Substance: INSULIN GLARGINE
  8. SOVALDI [Concomitant]
     Active Substance: SOFOSBUVIR
  9. XANAX [Concomitant]
     Active Substance: ALPRAZOLAM
  10. ASPIRIN. [Concomitant]
     Active Substance: ASPIRIN

REACTIONS (4)
  - Peripheral swelling [None]
  - Erythema [None]
  - Pain in extremity [None]
  - Walking aid user [None]

NARRATIVE: CASE EVENT DATE: 20160527
